FAERS Safety Report 21990030 (Version 1)
Quarter: 2023Q1

REPORT INFORMATION
  Report Type: Spontaneous
  Country: US (occurrence: None)
  Receive Date: 20230213
  Receipt Date: 20230213
  Transmission Date: 20230417
  Serious: Yes (Hospitalization)
  Sender: FDA-Public Use
  Company Number: None

PATIENT
  Age: 65 Year
  Sex: Male
  Weight: 107.1 kg

DRUGS (1)
  1. CARVYKTI [Suspect]
     Active Substance: CILTACABTAGENE AUTOLEUCEL
     Indication: Plasma cell myeloma
     Dosage: OTHER FREQUENCY : ONCE;?
     Route: 042
     Dates: start: 20020913, end: 20220913

REACTIONS (1)
  - Bell^s palsy [None]

NARRATIVE: CASE EVENT DATE: 20221026
